FAERS Safety Report 16452791 (Version 1)
Quarter: 2019Q2

REPORT INFORMATION
  Report Type: Spontaneous
  Country: CA (occurrence: CA)
  Receive Date: 20190619
  Receipt Date: 20190619
  Transmission Date: 20190711
  Serious: Yes (Hospitalization)
  Sender: FDA-Public Use
  Company Number: CA-TEVA-2019-CA-1065796

PATIENT
  Age: 32 Year
  Sex: Male
  Weight: 63 kg

DRUGS (4)
  1. IBUPROFEN/PSEUDOEPHEDRINEHYDROCHLORIDE [Suspect]
     Active Substance: IBUPROFEN\PSEUDOEPHEDRINE HYDROCHLORIDE
     Indication: PAIN
     Route: 065
  2. NAPROXEN SODIUM. [Suspect]
     Active Substance: NAPROXEN SODIUM
     Indication: PRODUCT USED FOR UNKNOWN INDICATION
     Route: 065
  3. INSULIN [Concomitant]
     Active Substance: INSULIN NOS
  4. ACETAMINOPHEN. [Suspect]
     Active Substance: ACETAMINOPHEN
     Indication: PAIN
     Route: 065

REACTIONS (6)
  - Swelling [Unknown]
  - Drug hypersensitivity [Unknown]
  - Dyspnoea [Unknown]
  - Eye swelling [Unknown]
  - Urticaria [Unknown]
  - Drug intolerance [Unknown]
